FAERS Safety Report 4603939-7 (Version None)
Quarter: 2005Q1

REPORT INFORMATION
  Report Type: 
  Country: None (occurrence: None)
  Receive Date: 20050309
  Receipt Date: 20050224
  Transmission Date: 20050727
  Serious: Yes (Other)
  Sender: FDA-Public Use
  Company Number: C-05-0018

PATIENT
  Age: 35 Year
  Sex: Female
  Weight: 77.1115 kg

DRUGS (3)
  1. LINDANE [Suspect]
     Indication: LICE INFESTATION
     Dosage: 60 ML; WASHED HAIR ONCE
     Dates: start: 20050223
  2. LINDANE [Suspect]
  3. NIX [Concomitant]

REACTIONS (13)
  - BURNING SENSATION [None]
  - DISORIENTATION [None]
  - DIZZINESS [None]
  - DRUG INTERACTION [None]
  - DYSPHAGIA [None]
  - DYSPNOEA [None]
  - INFLUENZA [None]
  - NAUSEA [None]
  - PALLOR [None]
  - THERAPY NON-RESPONDER [None]
  - THROAT TIGHTNESS [None]
  - TREMOR [None]
  - UPPER RESPIRATORY TRACT INFECTION [None]
